FAERS Safety Report 24435201 (Version 1)
Quarter: 2024Q4

REPORT INFORMATION
  Report Type: Spontaneous
  Country: US (occurrence: US)
  Receive Date: 20241015
  Receipt Date: 20241015
  Transmission Date: 20250114
  Serious: No
  Sender: AMGEN
  Company Number: US-AMGEN-USASP2024200129

PATIENT
  Age: 67 Year
  Sex: Male

DRUGS (3)
  1. IMDELLTRA [Suspect]
     Active Substance: TARLATAMAB-DLLE
     Indication: Small cell lung cancer
     Dosage: UNK
     Route: 065
     Dates: start: 20240923, end: 20240923
  2. IMDELLTRA [Suspect]
     Active Substance: TARLATAMAB-DLLE
     Dosage: UNK, SECOND DOSE DAY 8
     Route: 065
     Dates: start: 20240930, end: 20240930
  3. IMDELLTRA [Suspect]
     Active Substance: TARLATAMAB-DLLE
     Dosage: UNK, THIRD DOSE DAY 15
     Route: 065
     Dates: start: 20241007

REACTIONS (2)
  - Bradyphrenia [Unknown]
  - Confusional state [Unknown]

NARRATIVE: CASE EVENT DATE: 20240901
